FAERS Safety Report 18573693 (Version 2)
Quarter: 2021Q1

REPORT INFORMATION
  Report Type: Spontaneous
  Country: US (occurrence: US)
  Receive Date: 20201203
  Receipt Date: 20210112
  Transmission Date: 20210419
  Serious: No
  Sender: FDA-Public Use
  Company Number: US-ASTRAZENECA-2020SF55400

PATIENT
  Sex: Female
  Weight: 63.5 kg

DRUGS (3)
  1. SYMBICORT [Suspect]
     Active Substance: BUDESONIDE\FORMOTEROL FUMARATE DIHYDRATE
     Indication: CHRONIC OBSTRUCTIVE PULMONARY DISEASE
     Dosage: 160 OF 4.5 MCG 2 PUFFS TWICE A DAY
     Route: 055
     Dates: start: 20200611
  2. ALBUTEROL. [Concomitant]
     Active Substance: ALBUTEROL
  3. SYMBICORT [Suspect]
     Active Substance: BUDESONIDE\FORMOTEROL FUMARATE DIHYDRATE
     Indication: ASTHMA
     Dosage: 160 OF 4.5 MCG 2 PUFFS TWICE A DAY
     Route: 055
     Dates: start: 20200611

REACTIONS (8)
  - Wrong technique in device usage process [Unknown]
  - Drug delivery system malfunction [Unknown]
  - Device failure [Unknown]
  - Intentional device misuse [Not Recovered/Not Resolved]
  - Dyspnoea [Recovered/Resolved]
  - Product dose omission issue [Unknown]
  - Fatigue [Recovering/Resolving]
  - Chest discomfort [Recovering/Resolving]
